FAERS Safety Report 9244649 (Version 1)
Quarter: 2013Q2

REPORT INFORMATION
  Report Type: Spontaneous
  Country: US (occurrence: US)
  Receive Date: 20130422
  Receipt Date: 20130422
  Transmission Date: 20140414
  Serious: Yes (Other)
  Sender: FDA-Public Use
  Company Number: US-SANOFI-AVENTIS-2013SA040396

PATIENT
  Age: 60 Year
  Sex: Male

DRUGS (2)
  1. LANTUS SOLOSTAR [Suspect]
     Indication: DIABETES MELLITUS
     Dosage: DOSE:20 UNIT(S)
     Route: 058
     Dates: start: 201104
  2. SOLOSTAR [Suspect]
     Indication: DIABETES MELLITUS
     Dates: start: 201104

REACTIONS (3)
  - Eye haemorrhage [Unknown]
  - Visual acuity reduced [Unknown]
  - Incorrect storage of drug [Unknown]
